FAERS Safety Report 22934170 (Version 5)
Quarter: 2025Q2

REPORT INFORMATION
  Report Type: Spontaneous
  Country: US (occurrence: US)
  Receive Date: 20230912
  Receipt Date: 20250415
  Transmission Date: 20250717
  Serious: No
  Sender: SANOFI AVENTIS
  Company Number: US-SA-SAC20230907000422

PATIENT
  Age: 22 Year
  Sex: Male

DRUGS (2)
  1. ALPROLIX [Suspect]
     Active Substance: EFTRENONACOG ALFA
     Indication: Prophylaxis
     Dosage: 10000 IU (+/-10%), Q10D FOR PROPHYLAXIS
     Route: 042
  2. ALPROLIX [Suspect]
     Active Substance: EFTRENONACOG ALFA
     Indication: Prophylaxis
     Dosage: 10000 IU (+/-10%), Q10D FOR PROPHYLAXIS
     Route: 042

REACTIONS (6)
  - Ligament sprain [Unknown]
  - Haemorrhage [Unknown]
  - Haemorrhage [Unknown]
  - Ligament rupture [Unknown]
  - Accident [Unknown]
  - Treatment noncompliance [Unknown]

NARRATIVE: CASE EVENT DATE: 20230101
